FAERS Safety Report 5863593 (Version 1)
Quarter: 2020Q3

REPORT INFORMATION
  Report Type: Report from Study
  Country: GB (occurrence: GB)
  Receive Date: 20050819
  Receipt Date: 20050819
  Transmission Date: 20201104
  Serious: Yes (Hospitalization)
  Sender: FDA-Public Use
  Company Number: GB-JNJFOC-20050802244

PATIENT
  Age: 63 Year
  Sex: Male
  Weight: 85 kg

DRUGS (9)
  1. PLACEBO [Suspect]
     Active Substance: UNSPECIFIED INGREDIENT
     Indication: ACUTE MYOCARDIAL INFARCTION
     Route: 042
  2. PERINDOPRIL [Concomitant]
     Active Substance: PERINDOPRIL
     Indication: MYOCARDIAL INFARCTION
     Route: 048
  3. RETEPLASE [Suspect]
     Active Substance: RETEPLASE
     Indication: ACUTE MYOCARDIAL INFARCTION
     Route: 042
  4. BISOPROLOL [Concomitant]
     Active Substance: BISOPROLOL
     Indication: MYOCARDIAL INFARCTION
     Route: 048
  5. GABAPENTIN. [Concomitant]
     Active Substance: GABAPENTIN
     Indication: NEURALGIA
     Route: 048
  6. CLOPIDOGREL BISULFATE. [Concomitant]
     Active Substance: CLOPIDOGREL BISULFATE
     Indication: MYOCARDIAL INFARCTION
     Route: 048
  7. ABCIXIMAB [Suspect]
     Active Substance: ABCIXIMAB
     Indication: ACUTE MYOCARDIAL INFARCTION
     Route: 042
  8. ASPIRIN. [Concomitant]
     Active Substance: ASPIRIN
     Indication: MYOCARDIAL INFARCTION
     Route: 048
  9. ATORVASTATIN [Concomitant]
     Active Substance: ATORVASTATIN
     Route: 048

REACTIONS (1)
  - Vascular pseudoaneurysm [Recovered/Resolved]

NARRATIVE: CASE EVENT DATE: 20050720
